FAERS Safety Report 19685544 (Version 2)
Quarter: 2021Q3

REPORT INFORMATION
  Report Type: Spontaneous
  Country: CA (occurrence: CA)
  Receive Date: 20210811
  Receipt Date: 20210928
  Transmission Date: 20211014
  Serious: Yes (Other)
  Sender: FDA-Public Use
  Company Number: CA-CELGENEUS-CAN-20210801454

PATIENT
  Age: 78 Year
  Sex: Male
  Weight: 80.2 kg

DRUGS (1)
  1. REBLOZYL [Suspect]
     Active Substance: LUSPATERCEPT-AAMT
     Indication: MYELODYSPLASTIC SYNDROME
     Dosage: 1.33 MILLIGRAM/KILOGRAM (75 MG AND 25 MG VIAL)
     Route: 058
     Dates: start: 20210623

REACTIONS (2)
  - Haemoglobin decreased [Unknown]
  - Platelet count decreased [Unknown]

NARRATIVE: CASE EVENT DATE: 20210727
